FAERS Safety Report 12805374 (Version 1)
Quarter: 2016Q4

REPORT INFORMATION
  Report Type: Other
  Country: FR (occurrence: US)
  Receive Date: 20161004
  Receipt Date: 20161004
  Transmission Date: 20170207
  Serious: Yes (Other)
  Sender: FDA-Public Use
  Company Number: US-NOVEL LABORATORIES, INC-2016-03934

PATIENT
  Age: 60 Year
  Sex: Female

DRUGS (4)
  1. MORPHINE [Suspect]
     Active Substance: MORPHINE
     Indication: NEURALGIA
     Dosage: 0.24 MG
     Route: 037
  2. MORPHINE [Suspect]
     Active Substance: MORPHINE
     Dosage: DOSE REDUCED
     Route: 037
  3. MORPHINE [Suspect]
     Active Substance: MORPHINE
     Dosage: DOSE INCREASED
     Route: 037
  4. ZICONOTIDE [Suspect]
     Active Substance: ZICONOTIDE
     Indication: NEURALGIA
     Dosage: 0.48 MICROG
     Route: 065

REACTIONS (2)
  - Respiratory depression [Recovered/Resolved]
  - Somnolence [Recovered/Resolved]
